FAERS Safety Report 8016046-0 (Version None)
Quarter: 2011Q4

REPORT INFORMATION
  Report Type: 
  Country: None (occurrence: None)
  Receive Date: 20111230
  Receipt Date: 20111230
  Transmission Date: 20120403
  Serious: Yes (Other)
  Sender: FDA-Public Use
  Company Number: None

PATIENT
  Age: 52 Year
  Sex: Male
  Weight: 67.131 kg

DRUGS (1)
  1. SULFAMETHOXAZOLE AND TRIMETHOPRIM [Suspect]
     Indication: PROSTATE INFECTION
     Dosage: 1 TAB
     Route: 048
     Dates: start: 20111212, end: 20111227

REACTIONS (5)
  - MUSCULOSKELETAL STIFFNESS [None]
  - HEADACHE [None]
  - COUGH [None]
  - ERYTHEMA [None]
  - DISCOMFORT [None]
